FAERS Safety Report 9143050 (Version 1)
Quarter: 2013Q1

REPORT INFORMATION
  Report Type: Spontaneous
  Country: US (occurrence: US)
  Receive Date: 20130306
  Receipt Date: 20130306
  Transmission Date: 20140127
  Serious: No
  Sender: FDA-Public Use
  Company Number: US-PFIZER INC-2013061574

PATIENT
  Age: 48 Year
  Sex: Female
  Weight: 52.61 kg

DRUGS (6)
  1. PRISTIQ [Suspect]
     Indication: DEPRESSION
     Dosage: 100 MG, DAILY
  2. LEVOTHYROXINE [Concomitant]
     Indication: THYROID DISORDER
     Dosage: UNK
  3. TRAZODONE [Concomitant]
     Dosage: UNK
  4. PREMARIN [Concomitant]
     Indication: MENOPAUSE
     Dosage: UNK
  5. MEDROXYPROGESTERONE ACETATE [Concomitant]
     Indication: MENOPAUSE
     Dosage: UNK
  6. ZOLPIDEM [Concomitant]
     Indication: SLEEP DISORDER
     Dosage: UNK

REACTIONS (1)
  - Drug ineffective [Unknown]
